FAERS Safety Report 10148823 (Version 1)
Quarter: 2014Q2

REPORT INFORMATION
  Report Type: Report from Study
  Country: NL (occurrence: NL)
  Receive Date: 20140502
  Receipt Date: 20140502
  Transmission Date: 20141212
  Serious: Yes (Hospitalization)
  Sender: FDA-Public Use
  Company Number: NL-ROCHE-1388917

PATIENT
  Age: 52 Year
  Sex: Male

DRUGS (5)
  1. BEVACIZUMAB [Suspect]
     Indication: GASTRIC CANCER
     Dosage: MOST RECENT DOSE ON 23/DEC/2013
     Route: 042
     Dates: start: 20130709
  2. CAPECITABINE [Suspect]
     Indication: GASTRIC CANCER
     Dosage: MOST RECENT DOSE ON 23/DEC/2013
     Route: 048
     Dates: start: 20130709
  3. TRASTUZUMAB [Suspect]
     Indication: GASTRIC CANCER
     Dosage: MOST RECENT DOSE ON 23/DEC/2013
     Route: 042
     Dates: start: 20130709
  4. DOCETAXEL [Suspect]
     Indication: GASTRIC CANCER
     Dosage: MOST RECENT DOSE 22/OCT/2013
     Route: 042
     Dates: start: 20130709
  5. OXALIPLATIN [Suspect]
     Indication: GASTRIC CANCER
     Dosage: MOST RECENT DOSE 22/OCT/2013
     Route: 042
     Dates: start: 20130709

REACTIONS (1)
  - Cerebrovascular accident [Recovered/Resolved]
